FAERS Safety Report 17075949 (Version 4)
Quarter: 2021Q2

REPORT INFORMATION
  Report Type: Spontaneous
  Country: US (occurrence: US)
  Receive Date: 20191126
  Receipt Date: 20210624
  Transmission Date: 20210716
  Serious: Yes (Other)
  Sender: FDA-Public Use
  Company Number: US-GILEAD-2019-0439508

PATIENT
  Age: 49 Year
  Sex: Male
  Weight: 86.17 kg

DRUGS (52)
  1. LISINOPRIL. [Concomitant]
     Active Substance: LISINOPRIL
  2. KETOCONAZOLE. [Concomitant]
     Active Substance: KETOCONAZOLE
  3. NITROGLYCERIN. [Concomitant]
     Active Substance: NITROGLYCERIN
  4. CIPRODEX [Concomitant]
     Active Substance: CIPROFLOXACIN HYDROCHLORIDE\DEXAMETHASONE
  5. AMPICILLIN [Concomitant]
     Active Substance: AMPICILLIN
  6. MAALOX [CALCIUM CARBONATE] [Concomitant]
     Active Substance: CALCIUM CARBONATE
  7. AZITHROMYCIN ANHYDROUS. [Concomitant]
     Active Substance: AZITHROMYCIN ANHYDROUS
  8. SILDENAFIL. [Concomitant]
     Active Substance: SILDENAFIL
  9. ASPIRIN [ACETYLSALICYLIC ACID] [Concomitant]
     Active Substance: ASPIRIN
  10. DILANTIN [Concomitant]
     Active Substance: PHENYTOIN
  11. TOBRAMYCIN. [Concomitant]
     Active Substance: TOBRAMYCIN
  12. TIZANIDINE. [Concomitant]
     Active Substance: TIZANIDINE
  13. FAMOTIDINE. [Concomitant]
     Active Substance: FAMOTIDINE
  14. CORTISONE [Concomitant]
     Active Substance: CORTISONE
  15. VICODIN [Concomitant]
     Active Substance: ACETAMINOPHEN\HYDROCODONE BITARTRATE
  16. VALIUM [Concomitant]
     Active Substance: DIAZEPAM
  17. ATRIPLA [Suspect]
     Active Substance: EFAVIRENZ\EMTRICITABINE\TENOFOVIR DISOPROXIL FUMARATE
     Indication: HIV INFECTION
     Dosage: UNK
     Route: 048
     Dates: start: 20070131, end: 20170502
  18. ODEFSEY [Concomitant]
     Active Substance: EMTRICITABINE\RILPIVIRINE HYDROCHLORIDE\TENOFOVIR ALAFENAMIDE FUMARATE
  19. ALENDRONATE SODIUM. [Concomitant]
     Active Substance: ALENDRONATE SODIUM
     Indication: OSTEOPOROSIS
     Dosage: UNK
     Dates: start: 20170123
  20. DIAZEPAM. [Concomitant]
     Active Substance: DIAZEPAM
  21. SPIRIVA [Concomitant]
     Active Substance: TIOTROPIUM BROMIDE MONOHYDRATE
  22. IBUPROFEN. [Concomitant]
     Active Substance: IBUPROFEN
  23. METRONIDAZOLE. [Concomitant]
     Active Substance: METRONIDAZOLE
  24. TRIAMCINOLON [TRIAMCINOLONE] [Concomitant]
     Active Substance: TRIAMCINOLONE
  25. MONTELUKAST [Concomitant]
     Active Substance: MONTELUKAST SODIUM
  26. NEOMYCIN/POLYMYXIN/GRAMICIDIN [Concomitant]
     Active Substance: GRAMICIDIN\NEOMYCIN\POLYMYXIN
  27. OXYCODONE/APAP [Concomitant]
     Active Substance: ACETAMINOPHEN\OXYCODONE HYDROCHLORIDE
  28. BACTRIM [Concomitant]
     Active Substance: SULFAMETHOXAZOLE\TRIMETHOPRIM
  29. HEPARIN [Concomitant]
     Active Substance: HEPARIN SODIUM
  30. ATORVASTATIN [Concomitant]
     Active Substance: ATORVASTATIN
  31. ALBUTEROL SULFATE. [Concomitant]
     Active Substance: ALBUTEROL SULFATE
  32. PROAIR HFA [Concomitant]
     Active Substance: ALBUTEROL SULFATE
  33. ISENTRESS [Concomitant]
     Active Substance: RALTEGRAVIR POTASSIUM
  34. CLOPIDOGREL [Concomitant]
     Active Substance: CLOPIDOGREL BISULFATE
  35. ADVAIR HFA [Concomitant]
     Active Substance: FLUTICASONE PROPIONATE\SALMETEROL XINAFOATE
  36. AMOXICILLIN. [Concomitant]
     Active Substance: AMOXICILLIN
  37. DEXAMETHASONE. [Concomitant]
     Active Substance: DEXAMETHASONE
  38. LASIX [Concomitant]
     Active Substance: FUROSEMIDE
  39. COMBIVIR [Concomitant]
     Active Substance: LAMIVUDINE\ZIDOVUDINE
  40. EMTRIVA [Concomitant]
     Active Substance: EMTRICITABINE
  41. VIREAD [Suspect]
     Active Substance: TENOFOVIR DISOPROXIL FUMARATE
     Indication: HIV INFECTION
     Dosage: UNK
     Route: 065
     Dates: start: 20130104, end: 20130106
  42. ACYCLOVIR [ACICLOVIR] [Concomitant]
     Active Substance: ACYCLOVIR
  43. PANTOPRAZOLE [Concomitant]
     Active Substance: PANTOPRAZOLE
  44. CHANTIX [Concomitant]
     Active Substance: VARENICLINE TARTRATE
  45. PREDNISONE. [Concomitant]
     Active Substance: PREDNISONE
  46. HYDROCODONE/ACETAMINOPHEN [Concomitant]
     Active Substance: ACETAMINOPHEN\HYDROCODONE
  47. AFLURIA QUAD [Concomitant]
  48. METOPROLOL TARTRATE. [Concomitant]
     Active Substance: METOPROLOL TARTRATE
  49. TRELEGY ELLIPTA [Concomitant]
     Active Substance: FLUTICASONE FUROATE\UMECLIDINIUM BROMIDE\VILANTEROL TRIFENATATE
  50. POTASSIUM CHLORIDE. [Concomitant]
     Active Substance: POTASSIUM CHLORIDE
  51. DOK [Concomitant]
     Active Substance: DOCUSATE SODIUM
  52. SUSTIVA [Concomitant]
     Active Substance: EFAVIRENZ

REACTIONS (15)
  - Ankle fracture [Recovered/Resolved]
  - Osteopenia [Not Recovered/Not Resolved]
  - Anxiety [Unknown]
  - Rib fracture [Recovered/Resolved]
  - Anhedonia [Unknown]
  - Pain [Unknown]
  - Spinal fusion surgery [Unknown]
  - Bone density decreased [Unknown]
  - Spinal compression fracture [Recovered/Resolved]
  - Economic problem [Unknown]
  - Spinal compression fracture [Unknown]
  - Osteoporosis [Not Recovered/Not Resolved]
  - Cervical vertebral fracture [Unknown]
  - Emotional distress [Unknown]
  - Lumbar vertebral fracture [Unknown]

NARRATIVE: CASE EVENT DATE: 20081203
